FAERS Safety Report 8452364-X (Version None)
Quarter: 2012Q2

REPORT INFORMATION
  Report Type: 
  Country: None (occurrence: None)
  Receive Date: 20120620
  Receipt Date: 20120425
  Transmission Date: 20120825
  Serious: No
  Sender: FDA-Public Use
  Company Number: US-VERTEX PHARMACEUTICALS INC.-AE-2012-005037

PATIENT
  Sex: Male
  Weight: 74.456 kg

DRUGS (5)
  1. PROMACTA [Concomitant]
     Indication: IDIOPATHIC THROMBOCYTOPENIC PURPURA
     Route: 048
  2. INCIVEK [Suspect]
     Indication: HEPATITIS C
     Route: 048
     Dates: start: 20120401
  3. PEG-INTRON [Concomitant]
     Indication: HEPATITIS C
     Route: 058
     Dates: start: 20120401
  4. LEVOTHYROXINE SODIUM [Concomitant]
     Indication: HYPOTHYROIDISM
     Route: 048
  5. RIBAVIRIN [Concomitant]
     Indication: HEPATITIS C
     Route: 048
     Dates: start: 20120401

REACTIONS (6)
  - HEADACHE [None]
  - ERYTHEMA OF EYELID [None]
  - NAUSEA [None]
  - PLATELET COUNT DECREASED [None]
  - PHOTOSENSITIVITY REACTION [None]
  - FATIGUE [None]
